FAERS Safety Report 16274685 (Version 1)
Quarter: 2019Q2

REPORT INFORMATION
  Report Type: Spontaneous
  Country: US (occurrence: US)
  Receive Date: 20190503
  Receipt Date: 20190503
  Transmission Date: 20190711
  Serious: Yes (Other)
  Sender: FDA-Public Use
  Company Number: None

PATIENT
  Age: 53 Year
  Sex: Male
  Weight: 83 kg

DRUGS (1)
  1. COSENTYX [Suspect]
     Active Substance: SECUKINUMAB
     Indication: ANKYLOSING SPONDYLITIS
     Dosage: ?          OTHER FREQUENCY:MONTHLY;?
     Route: 058
     Dates: start: 20171127

REACTIONS (5)
  - Allergic respiratory symptom [None]
  - Pruritus [None]
  - Rhinorrhoea [None]
  - Pulmonary congestion [None]
  - Sinus disorder [None]

NARRATIVE: CASE EVENT DATE: 20190225
